FAERS Safety Report 9232229 (Version 1)
Quarter: 2013Q2

REPORT INFORMATION
  Report Type: Spontaneous
  Country: US (occurrence: US)
  Receive Date: 20130415
  Receipt Date: 20130415
  Transmission Date: 20140414
  Serious: Yes (Hospitalization)
  Sender: FDA-Public Use
  Company Number: US-MYLANLABS-2013S1007557

PATIENT
  Age: 46 Year
  Sex: Male

DRUGS (4)
  1. NYQUIL [Suspect]
     Indication: NASOPHARYNGITIS
     Dosage: DRANK 240ML OF THE LIQUID IN 1 NIGHT
     Route: 048
  2. SERTRALINE [Interacting]
     Indication: DEPRESSION
     Dosage: 100 MG/DAY
     Route: 065
  3. METFORMIN [Concomitant]
     Indication: DIABETES MELLITUS
     Route: 065
  4. LEVOTHYROXINE SODIUM [Concomitant]
     Indication: HYPOTHYROIDISM
     Dosage: 100MICROG
     Route: 065

REACTIONS (2)
  - Serotonin syndrome [Recovered/Resolved]
  - Drug interaction [Recovered/Resolved]
